FAERS Safety Report 7329065-4 (Version None)
Quarter: 2011Q1

REPORT INFORMATION
  Report Type: 
  Country: None (occurrence: None)
  Receive Date: 20110303
  Receipt Date: 20110224
  Transmission Date: 20110831
  Serious: Yes (Life-Threatening)
  Sender: FDA-Public Use
  Company Number: RU-ASTRAZENECA-2011SE08660

PATIENT
  Age: 29 Year
  Sex: Female

DRUGS (1)
  1. SYMBICORT [Suspect]
     Indication: ASTHMA
     Dosage: 160/4.5 MCG, 1 DOSE (INHALATION) AT MORNING AND  AT THE EVENING
     Route: 055
     Dates: start: 20101218, end: 20110223

REACTIONS (3)
  - DRUG EXPOSURE DURING PREGNANCY [None]
  - TACHYCARDIA [None]
  - PALPITATIONS [None]
